FAERS Safety Report 11553503 (Version 2)
Quarter: 2015Q4

REPORT INFORMATION
  Report Type: Spontaneous
  Country: GB (occurrence: GB)
  Receive Date: 20150925
  Receipt Date: 20151009
  Transmission Date: 20160304
  Serious: Yes (Other)
  Sender: FDA-Public Use
  Company Number: GB-PFIZER INC-2015317325

PATIENT
  Age: 20 Year
  Sex: Female

DRUGS (1)
  1. SCHERING PC4 [Suspect]
     Active Substance: ETHINYL ESTRADIOL\LEVONORGESTREL
     Indication: POST COITAL CONTRACEPTION
     Dosage: UNK

REACTIONS (10)
  - Pallor [None]
  - Haemorrhage in pregnancy [None]
  - Ectopic pregnancy [Unknown]
  - Gait disturbance [None]
  - Abdominal pain [None]
  - Drug ineffective for unapproved indication [Unknown]
  - Malaise [None]
  - Feeding disorder [None]
  - Pregnancy after post coital contraception [None]
  - Maternal exposure before pregnancy [None]
